FAERS Safety Report 4629991-0 (Version None)
Quarter: 2005Q2

REPORT INFORMATION
  Report Type: 
  Country: None (occurrence: None)
  Receive Date: 20050408
  Receipt Date: 20050330
  Transmission Date: 20051028
  Serious: Yes (Hospitalization, Disabling)
  Sender: FDA-Public Use
  Company Number: US-KINGPHARMUSA00001-K200500444

PATIENT
  Age: 87 Year
  Sex: Female

DRUGS (9)
  1. ALTACE [Suspect]
     Indication: CARDIAC FAILURE CONGESTIVE
     Dosage: 10 MG, QD
  2. TRIMIPRAMINE MALEATE [Suspect]
     Indication: DEPRESSION
     Dosage: 75 MG, QHS
  3. THALIDOMIDE [Suspect]
     Indication: MULTIPLE MYELOMA
     Dosage: 100 MG, QD
     Route: 048
     Dates: start: 20050312, end: 20050313
  4. FELODIPINE [Suspect]
     Indication: MYOCARDIAL ISCHAEMIA
     Dosage: 2.5 MG, QD
  5. FRUSEMIDE [Concomitant]
     Indication: MYOCARDIAL ISCHAEMIA
     Dosage: 40 MG, QD
  6. PARACETAMOL [Concomitant]
     Indication: OSTEOARTHRITIS
     Dosage: UP TO 1 G QID
  7. DEXAMETHASONE [Concomitant]
     Indication: MULTIPLE MYELOMA
     Dosage: 40 MG, QD
  8. ALLOPURINOL [Concomitant]
     Dosage: 100 MG, QD
  9. PYRIDOXINE HCL [Concomitant]
     Indication: MULTIPLE MYELOMA
     Dosage: 50 MG, QD

REACTIONS (4)
  - CONVULSION [None]
  - DRUG INTERACTION [None]
  - HYPOTENSION [None]
  - VOMITING [None]
